FAERS Safety Report 7156010-7 (Version None)
Quarter: 2010Q4

REPORT INFORMATION
  Report Type: 
  Country: None (occurrence: None)
  Receive Date: 20101214
  Receipt Date: 20101207
  Transmission Date: 20110411
  Serious: Yes (Other)
  Sender: FDA-Public Use
  Company Number: KR-GENZYME-FABR-1001696

PATIENT
  Sex: Male

DRUGS (1)
  1. FABRAZYME [Suspect]
     Indication: FABRY'S DISEASE
     Dosage: UNK
     Route: 042

REACTIONS (5)
  - AURICULAR SWELLING [None]
  - RASH GENERALISED [None]
  - RESPIRATORY DISORDER [None]
  - SWELLING FACE [None]
  - SWOLLEN TONGUE [None]
